FAERS Safety Report 13641304 (Version 1)
Quarter: 2017Q2

REPORT INFORMATION
  Report Type: Spontaneous
  Country: US (occurrence: US)
  Receive Date: 20170609
  Receipt Date: 20170609
  Transmission Date: 20170830
  Serious: Yes (Hospitalization, Disabling)
  Sender: FDA-Public Use
  Company Number: None

PATIENT
  Age: 47 Year
  Sex: Female
  Weight: 46.35 kg

DRUGS (1)
  1. PREDNISONE. [Suspect]
     Active Substance: PREDNISONE
     Indication: COUGH
     Route: 048
     Dates: start: 20120610

REACTIONS (6)
  - Carotid artery dissection [None]
  - Renal pain [None]
  - Vomiting [None]
  - Hypertension [None]
  - Retinal injury [None]
  - Renal artery dissection [None]

NARRATIVE: CASE EVENT DATE: 20120814
